FAERS Safety Report 7479109-4 (Version None)
Quarter: 2011Q2

REPORT INFORMATION
  Report Type: 
  Country: None (occurrence: None)
  Receive Date: 20110513
  Receipt Date: 20110509
  Transmission Date: 20111010
  Serious: Yes (Death, Life-Threatening, Hospitalization, Disabling)
  Sender: FDA-Public Use
  Company Number: ES-CELGENEUS-144-21880-09111133

PATIENT
  Sex: Female
  Weight: 84 kg

DRUGS (9)
  1. OMEPRAZOLE [Concomitant]
     Dosage: 20 MILLIGRAM
     Route: 048
     Dates: start: 20090818
  2. SULPHAMETOXAZOLE/TRIMETOPRIM [Concomitant]
     Route: 048
     Dates: start: 20090818
  3. ENOXAPARIN [Concomitant]
     Dosage: 40 MILLIGRAM
     Route: 058
     Dates: start: 20090818
  4. REVLIMID [Suspect]
     Dosage: 15 MILLIGRAM
     Route: 048
     Dates: start: 20090818
  5. ACYCLOVIR [Concomitant]
     Dosage: 400 MILLIGRAM
     Route: 048
     Dates: start: 20090818
  6. LMWH [Concomitant]
     Indication: PROPHYLAXIS
     Route: 065
  7. REVLIMID [Suspect]
     Indication: MULTIPLE MYELOMA
     Dosage: 15 MILLIGRAM
     Route: 048
     Dates: start: 20091015, end: 20091113
  8. DEXAMETHASONE [Suspect]
     Indication: MULTIPLE MYELOMA
     Dosage: 40 MILLIGRAM
     Route: 048
     Dates: start: 20091015, end: 20091113
  9. DEXAMETHASONE [Suspect]
     Dosage: 40 MILLIGRAM
     Route: 048
     Dates: start: 20090818

REACTIONS (3)
  - HEADACHE [None]
  - PYREXIA [None]
  - LEUKAEMIA [None]
